FAERS Safety Report 10103703 (Version 1)
Quarter: 2014Q2

REPORT INFORMATION
  Report Type: Spontaneous
  Country: IT (occurrence: IT)
  Receive Date: 20140424
  Receipt Date: 20140424
  Transmission Date: 20141212
  Serious: Yes (Hospitalization)
  Sender: FDA-Public Use
  Company Number: IT-BAYER-2014-057443

PATIENT
  Age: 35 Year
  Sex: Female

DRUGS (1)
  1. ASPIRINA [Suspect]
     Indication: HEADACHE
     Dosage: DAILY DOSE 2 DF
     Route: 048
     Dates: start: 20131202, end: 20131206

REACTIONS (3)
  - Faeces discoloured [Unknown]
  - Asthenia [Unknown]
  - Dizziness [Unknown]
